FAERS Safety Report 8815355 (Version 1)
Quarter: 2012Q4

REPORT INFORMATION
  Report Type: 
  Country: US (occurrence: US)
  Receive Date: 20120928
  Receipt Date: 20120928
  Transmission Date: 20130627
  Serious: No
  Sender: FDA-Public Use
  Company Number: US-PFIZER INC-2012239185

PATIENT
  Age: 51 Year
  Sex: Male
  Weight: 136 kg

DRUGS (6)
  1. VIAGRA [Suspect]
     Dosage: one tablet of 100mg, daily
     Route: 048
     Dates: start: 2012
  2. VIAGRA [Suspect]
     Dosage: one tablet of 50mg, daily
     Route: 048
     Dates: start: 201209
  3. VIAGRA [Suspect]
     Dosage: two tablets of 50mg daily
  4. LORTAB [Concomitant]
     Indication: BACK PAIN
     Dosage: two tablets of ^7.5mg^ daily
     Route: 048
  5. HYDROCHLOROTHIAZIDE [Concomitant]
     Indication: DIURETIC THERAPY
     Dosage: 12.5 mg, daily
  6. METFORMIN [Concomitant]
     Dosage: UNK

REACTIONS (1)
  - Drug ineffective [Unknown]
